FAERS Safety Report 25200319 (Version 1)
Quarter: 2025Q2

REPORT INFORMATION
  Report Type: Spontaneous
  Country: US (occurrence: US)
  Receive Date: 20250415
  Receipt Date: 20250415
  Transmission Date: 20250717
  Serious: No
  Sender: ALKERMES
  Company Number: US-ALKERMES INC.-ALK-2025-000904

PATIENT
  Age: 58 Year
  Sex: Female

DRUGS (2)
  1. VIVITROL [Suspect]
     Active Substance: NALTREXONE
     Indication: Alcoholism
     Route: 030
     Dates: start: 2012
  2. VIVITROL [Suspect]
     Active Substance: NALTREXONE
     Route: 030

REACTIONS (2)
  - Wrong technique in product usage process [Recovered/Resolved]
  - Injection site haematoma [Unknown]
